FAERS Safety Report 24991789 (Version 1)
Quarter: 2025Q1

REPORT INFORMATION
  Report Type: Spontaneous
  Country: GB (occurrence: GB)
  Receive Date: 20250220
  Receipt Date: 20250220
  Transmission Date: 20250408
  Serious: Yes (Hospitalization, Disabling, Other)
  Sender: BAYER HEALTHCARE PHARMACEUTICALS INC.
  Company Number: None

PATIENT
  Age: 53 Year
  Sex: Male

DRUGS (6)
  1. CIPROFLOXACIN [Suspect]
     Active Substance: CIPROFLOXACIN
     Indication: Epididymitis
     Route: 048
     Dates: start: 2019, end: 2019
  2. CIPROFLOXACIN [Suspect]
     Active Substance: CIPROFLOXACIN
     Indication: Urinary tract infection
  3. ROSUVASTATIN [Concomitant]
     Active Substance: ROSUVASTATIN
     Indication: Hypercholesterolaemia
     Dates: start: 2019
  4. LOSARTAN [Concomitant]
     Active Substance: LOSARTAN
  5. ESCITALOPRAM [Concomitant]
     Active Substance: ESCITALOPRAM OXALATE
  6. ALBUTEROL [Concomitant]
     Active Substance: ALBUTEROL

REACTIONS (6)
  - Tendonitis [Recovered/Resolved with Sequelae]
  - Illness [None]
  - Musculoskeletal pain [None]
  - Arthralgia [None]
  - Hypokinesia [None]
  - Chronic fatigue syndrome [None]

NARRATIVE: CASE EVENT DATE: 20190101
